FAERS Safety Report 10390652 (Version 2)
Quarter: 2014Q3

REPORT INFORMATION
  Report Type: Spontaneous
  Country: US (occurrence: US)
  Receive Date: 20140818
  Receipt Date: 20140912
  Transmission Date: 20150326
  Serious: Yes (Death)
  Sender: FDA-Public Use
  Company Number: US-ELI_LILLY_AND_COMPANY-US201408004678

PATIENT
  Age: 67 Year
  Sex: Male
  Weight: 79.82 kg

DRUGS (4)
  1. ASPIRIN. [Concomitant]
     Active Substance: ASPIRIN
     Indication: ANTIPLATELET THERAPY
     Dosage: UNK, UNKNOWN
     Route: 065
  2. ANGIOMAX [Suspect]
     Active Substance: BIVALIRUDIN
     Indication: ANTIPLATELET THERAPY
     Dosage: UNK, UNKNOWN
     Route: 065
     Dates: start: 20140707
  3. EFFIENT [Suspect]
     Active Substance: PRASUGREL HYDROCHLORIDE
     Indication: MYOCARDIAL INFARCTION
     Dosage: 60 MG, SINGLE
     Route: 048
     Dates: start: 20140707
  4. EFFIENT [Suspect]
     Active Substance: PRASUGREL HYDROCHLORIDE
     Indication: PERCUTANEOUS CORONARY INTERVENTION

REACTIONS (1)
  - Haemorrhage intracranial [Fatal]

NARRATIVE: CASE EVENT DATE: 20140708
